FAERS Safety Report 8417465-0 (Version None)
Quarter: 2012Q2

REPORT INFORMATION
  Report Type: 
  Country: None (occurrence: None)
  Receive Date: 20120606
  Receipt Date: 20120531
  Transmission Date: 20120825
  Serious: Yes (Other)
  Sender: FDA-Public Use
  Company Number: PHHY2012IT047107

PATIENT
  Age: 30 Year
  Sex: Male

DRUGS (3)
  1. FLUOROURACIL [Suspect]
     Indication: ADENOCARCINOMA
  2. LEUCOVORIN CALCIUM [Concomitant]
     Indication: ADENOCARCINOMA
  3. OXALIPLATIN [Concomitant]

REACTIONS (5)
  - MUCOSAL INFLAMMATION [None]
  - HEPATOTOXICITY [None]
  - DIARRHOEA [None]
  - VOMITING [None]
  - STOMATITIS [None]
